FAERS Safety Report 6355150-X (Version None)
Quarter: 2009Q3

REPORT INFORMATION
  Report Type: 
  Country: None (occurrence: None)
  Receive Date: 20090914
  Receipt Date: 20090902
  Transmission Date: 20100115
  Serious: Yes (Other)
  Sender: FDA-Public Use
  Company Number: US-JNJCH-2009023779

PATIENT
  Sex: Male
  Weight: 10 kg

DRUGS (3)
  1. CHILDREN'S BENADRYL DYE-FREE ALLERGY LIQUID [Suspect]
     Indication: SINUS CONGESTION
     Dosage: TEXT:A LITTLE LESS THAN 1/4 TSPN.ONCE NIGHTLY
     Route: 048
  2. PREVACID [Concomitant]
     Indication: GASTROOESOPHAGEAL REFLUX DISEASE
     Dosage: TEXT:1/2 A CAPSULE
     Route: 048
  3. IRON [Concomitant]
     Indication: BLOOD IRON DECREASED
     Dosage: TEXT:1 DROPPERFUL DAILY
     Route: 048

REACTIONS (3)
  - ABASIA [None]
  - SPEECH DISORDER [None]
  - WRONG DRUG ADMINISTERED [None]
